FAERS Safety Report 25199619 (Version 1)
Quarter: 2025Q2

REPORT INFORMATION
  Report Type: Spontaneous
  Country: GB (occurrence: GB)
  Receive Date: 20250415
  Receipt Date: 20250415
  Transmission Date: 20250717
  Serious: Yes (Other)
  Sender: JOHNSON AND JOHNSON
  Company Number: GB-JNJFOC-20250419343

PATIENT

DRUGS (1)
  1. HALDOL [Suspect]
     Active Substance: HALOPERIDOL
     Indication: Product used for unknown indication
     Route: 065

REACTIONS (9)
  - Anticholinergic syndrome [Unknown]
  - Delirium [Unknown]
  - Blindness [Unknown]
  - Intentional overdose [Unknown]
  - Psychotic disorder [Unknown]
  - Amnesia [Unknown]
  - Insomnia [Unknown]
  - Affective disorder [Unknown]
  - Appetite disorder [Unknown]
